FAERS Safety Report 5091867-5 (Version None)
Quarter: 2006Q3

REPORT INFORMATION
  Report Type: 
  Country: None (occurrence: None)
  Receive Date: 20060829
  Receipt Date: 20060727
  Transmission Date: 20061208
  Serious: Yes (Other)
  Sender: FDA-Public Use
  Company Number: US-BRISTOL-MYERS SQUIBB COMPANY-13458039

PATIENT
  Age: 54 Year
  Weight: 105 kg

DRUGS (5)
  1. ERBITUX [Suspect]
     Indication: COLON CANCER
     Route: 042
     Dates: start: 20060720, end: 20060720
  2. BENADRYL [Concomitant]
     Route: 042
     Dates: start: 20060720, end: 20060720
  3. LEUCOVORIN CALCIUM [Concomitant]
  4. FLUOROURACIL [Concomitant]
  5. AVASTIN [Concomitant]

REACTIONS (1)
  - URTICARIA [None]
